FAERS Safety Report 8368399-1 (Version None)
Quarter: 2012Q2

REPORT INFORMATION
  Report Type: 
  Country: None (occurrence: None)
  Receive Date: 20120517
  Receipt Date: 20120507
  Transmission Date: 20120825
  Serious: Yes (Hospitalization, Other)
  Sender: FDA-Public Use
  Company Number: US-ELI_LILLY_AND_COMPANY-US201101003292

PATIENT
  Sex: Female

DRUGS (10)
  1. AMIODARONE HCL [Concomitant]
  2. FORTEO [Suspect]
     Indication: OSTEOPOROSIS
     Dosage: 20 UG, DAILY (1/D)
     Route: 058
  3. METOPROLOL [Concomitant]
  4. KLONOPIN [Concomitant]
  5. FORTEO [Suspect]
     Dosage: 20 UG, DAILY (1/D)
     Route: 058
  6. PREDNISONE [Concomitant]
  7. FORTEO [Suspect]
     Dosage: 20 UG, DAILY (1/D)
     Route: 058
  8. PRAVACHOL [Concomitant]
  9. SYNTHROID [Concomitant]
  10. WARFARIN SODIUM [Concomitant]

REACTIONS (6)
  - PAIN IN JAW [None]
  - MALAISE [None]
  - VISUAL IMPAIRMENT [None]
  - RENAL CANCER [None]
  - INTENTIONAL DRUG MISUSE [None]
  - INFLUENZA [None]
